FAERS Safety Report 8192432-3 (Version None)
Quarter: 2012Q1

REPORT INFORMATION
  Report Type: 
  Country: None (occurrence: None)
  Receive Date: 20120308
  Receipt Date: 20120229
  Transmission Date: 20120608
  Serious: No
  Sender: FDA-Public Use
  Company Number: US-BIOGENIDEC-2010BI038426

PATIENT
  Sex: Female

DRUGS (5)
  1. TYSABRI [Suspect]
     Route: 042
     Dates: start: 20100908, end: 20110512
  2. BENADRYL [Concomitant]
     Indication: PREMEDICATION
     Route: 048
  3. AVONEX [Concomitant]
     Indication: MULTIPLE SCLEROSIS
     Route: 030
     Dates: start: 20110817
  4. SOLU-MEDROL [Concomitant]
     Indication: PREMEDICATION
     Route: 042
  5. TYSABRI [Suspect]
     Indication: MULTIPLE SCLEROSIS
     Route: 042
     Dates: start: 20050113, end: 20050213

REACTIONS (7)
  - EYE SWELLING [None]
  - CHILLS [None]
  - RASH [None]
  - THROAT IRRITATION [None]
  - MULTIPLE ALLERGIES [None]
  - HYPERSENSITIVITY [None]
  - URTICARIA [None]
